FAERS Safety Report 8516551-4 (Version None)
Quarter: 2012Q3

REPORT INFORMATION
  Report Type: 
  Country: None (occurrence: None)
  Receive Date: 20120718
  Receipt Date: 20120711
  Transmission Date: 20120928
  Serious: No
  Sender: FDA-Public Use
  Company Number: US-PFIZER INC-2012166580

PATIENT
  Sex: Female

DRUGS (1)
  1. VFEND [Suspect]
     Indication: HISTOPLASMOSIS
     Dosage: 1-200 MG BID
     Dates: start: 20120508

REACTIONS (1)
  - BLISTER [None]
